FAERS Safety Report 8805141 (Version 2)
Quarter: 2012Q4

REPORT INFORMATION
  Report Type: 
  Country: US (occurrence: US)
  Receive Date: 20120924
  Receipt Date: 20121030
  Transmission Date: 20130627
  Serious: Yes (Other)
  Sender: FDA-Public Use
  Company Number: US-FRI-1000038548

PATIENT
  Age: 49 Year
  Sex: Female

DRUGS (5)
  1. ARMOUR THYROID [Suspect]
     Indication: HYPOTHYROIDISM
  2. ARMOUR THYROID [Suspect]
     Dosage: 45 mg
     Route: 048
     Dates: end: 20120907
  3. ARMOUR THYROID [Suspect]
     Dosage: 90 mg
     Route: 048
     Dates: start: 20120913, end: 20120913
  4. ARMOUR THYROID [Suspect]
     Dosage: 45 mg
     Route: 048
     Dates: start: 20120914
  5. BONE-UP CALCIUM SUPPLEMENT [Concomitant]

REACTIONS (3)
  - Supraventricular tachycardia [Recovered/Resolved]
  - Hepatic cyst [Not Recovered/Not Resolved]
  - Medication error [Recovered/Resolved]
